FAERS Safety Report 20210666 (Version 2)
Quarter: 2022Q3

REPORT INFORMATION
  Report Type: Spontaneous
  Country: JP (occurrence: JP)
  Receive Date: 20211221
  Receipt Date: 20220714
  Transmission Date: 20221027
  Serious: Yes (Hospitalization, Other)
  Sender: FDA-Public Use
  Company Number: JP-GLAXOSMITHKLINE-JP2021JPN156474

PATIENT

DRUGS (5)
  1. BENLYSTA [Suspect]
     Active Substance: BELIMUMAB
     Dosage: UNK
     Dates: start: 20210616, end: 20210629
  2. BENLYSTA [Suspect]
     Active Substance: BELIMUMAB
     Dosage: UNK
     Dates: start: 20210927
  3. PREDONINE [Concomitant]
     Active Substance: PREDNISOLONE
     Dosage: 20 MG
  4. NEORAL [Concomitant]
     Active Substance: CYCLOSPORINE
     Dosage: UNK
  5. MIZORIBINE [Concomitant]
     Active Substance: MIZORIBINE
     Dosage: UNK

REACTIONS (3)
  - Cellulitis [Recovered/Resolved]
  - Bacterial infection [Recovered/Resolved]
  - Systemic lupus erythematosus [Unknown]

NARRATIVE: CASE EVENT DATE: 20210629
